FAERS Safety Report 5297312-9 (Version None)
Quarter: 2007Q2

REPORT INFORMATION
  Report Type: 
  Country: None (occurrence: None)
  Receive Date: 20070416
  Receipt Date: 20070404
  Transmission Date: 20071010
  Serious: Yes (Life-Threatening, Hospitalization)
  Sender: FDA-Public Use
  Company Number: HQWYE516204APR07

PATIENT
  Sex: Female

DRUGS (3)
  1. PANTOZOL [Suspect]
     Indication: ABDOMINAL PAIN UPPER
     Route: 048
     Dates: start: 20061123, end: 20061213
  2. PANTOZOL [Suspect]
     Route: 048
     Dates: start: 20061220
  3. PARACETAMOL [Concomitant]
     Indication: TOOTHACHE
     Dates: start: 20061101, end: 20061101

REACTIONS (1)
  - THROMBOTIC THROMBOCYTOPENIC PURPURA [None]
